FAERS Safety Report 8335956-8 (Version None)
Quarter: 2012Q2

REPORT INFORMATION
  Report Type: 
  Country: None (occurrence: None)
  Receive Date: 20120504
  Receipt Date: 20120501
  Transmission Date: 20120825
  Serious: No
  Sender: FDA-Public Use
  Company Number: US-PFIZER INC-2012090153

PATIENT
  Sex: Male
  Weight: 72.562 kg

DRUGS (2)
  1. VIAGRA [Suspect]
     Dosage: 100 MG, AS NEEDED
     Route: 048
  2. VIAGRA [Suspect]
     Indication: VASECTOMY
     Dosage: UNK, AS NEEDED
     Route: 048

REACTIONS (1)
  - DRUG INEFFECTIVE [None]
